FAERS Safety Report 10519302 (Version 2)
Quarter: 2015Q1

REPORT INFORMATION
  Report Type: Spontaneous
  Country: FR (occurrence: FR)
  Receive Date: 20141015
  Receipt Date: 20150114
  Transmission Date: 20150720
  Serious: Yes (Other)
  Sender: FDA-Public Use
  Company Number: FR-GLAXOSMITHKLINE-FR2014GSK000849

PATIENT
  Age: 50 Year
  Sex: Male
  Weight: 68 kg

DRUGS (8)
  1. EMEND [Suspect]
     Active Substance: APREPITANT
     Indication: VOMITING
     Dosage: UNK
     Dates: start: 20140411
  2. LAROXYL [Suspect]
     Active Substance: AMITRIPTYLINE
     Indication: DEPRESSION
     Dosage: 15 UNK, UNK
     Route: 048
     Dates: start: 20140411
  3. ERBITUX [Suspect]
     Active Substance: CETUXIMAB
     Indication: LARYNGEAL CANCER
     Dosage: UNK
     Route: 042
     Dates: start: 20140403
  4. LYSANXIA [Suspect]
     Active Substance: PRAZEPAM
     Indication: ANXIETY
     Dosage: 10 MG, TID
     Route: 048
     Dates: start: 20140411
  5. CISPLATIN + CYCLOPHOSPHAMIDE + DOXORUBICIN HYDROCHLORIDE + ETOPOSIDE + [Suspect]
     Active Substance: CISPLATIN\CYCLOPHOSPHAMIDE\DEXAMETHASONE\ETOPOSIDE
     Indication: LARYNGEAL CANCER
     Dosage: UNK
     Dates: start: 20140403
  6. PRIMPERAN [Suspect]
     Active Substance: METOCLOPRAMIDE HYDROCHLORIDE
     Indication: VOMITING
     Dosage: UNK
     Route: 054
     Dates: start: 20140411
  7. FLUOROURACIL. [Suspect]
     Active Substance: FLUOROURACIL
     Indication: LARYNGEAL CANCER
     Dosage: UNK
     Dates: start: 20140403
  8. ZOPHREN [Suspect]
     Active Substance: ONDANSETRON
     Indication: VOMITING
     Dosage: UNK
     Route: 054
     Dates: start: 20140411

REACTIONS (2)
  - Acne [Not Recovered/Not Resolved]
  - Nausea [Not Recovered/Not Resolved]

NARRATIVE: CASE EVENT DATE: 201404
